FAERS Safety Report 25136091 (Version 1)
Quarter: 2025Q1

REPORT INFORMATION
  Report Type: Spontaneous
  Country: US (occurrence: US)
  Receive Date: 20250328
  Receipt Date: 20250328
  Transmission Date: 20250409
  Serious: Yes (Death, Hospitalization, Other)
  Sender: ARDELYX
  Company Number: US-ARDELYX-2025ARDX002011

PATIENT
  Sex: Female

DRUGS (1)
  1. IBSRELA [Suspect]
     Active Substance: TENAPANOR HYDROCHLORIDE
     Indication: Irritable bowel syndrome
     Route: 048
     Dates: end: 20250308

REACTIONS (3)
  - Organ failure [Fatal]
  - Sepsis [Fatal]
  - Hospice care [None]
